FAERS Safety Report 9025991 (Version 2)
Quarter: 2013Q1

REPORT INFORMATION
  Report Type: Spontaneous
  Country: FR (occurrence: FR)
  Receive Date: 20130122
  Receipt Date: 20130131
  Transmission Date: 20140127
  Serious: Yes (Hospitalization)
  Sender: FDA-Public Use
  Company Number: FR-ROCHE-1180983

PATIENT
  Age: 60 Year
  Sex: Female
  Weight: 90 kg

DRUGS (4)
  1. PEGASYS [Suspect]
     Indication: ESSENTIAL THROMBOCYTHAEMIA
     Route: 058
  2. HYDREA [Suspect]
     Indication: ESSENTIAL THROMBOCYTHAEMIA
     Route: 048
  3. COAPROVEL [Concomitant]
     Indication: HYPERTENSION
     Dosage: 300/1.25
     Route: 065
  4. LIPANTHYL [Concomitant]
     Indication: DYSLIPIDAEMIA
     Dosage: LIPANTHYL 200
     Route: 065

REACTIONS (2)
  - Haemolytic anaemia [Not Recovered/Not Resolved]
  - Neutropenia [Recovered/Resolved]
